FAERS Safety Report 6988868-6 (Version None)
Quarter: 2010Q3

REPORT INFORMATION
  Report Type: 
  Country: None (occurrence: None)
  Receive Date: 20100916
  Receipt Date: 20100908
  Transmission Date: 20110219
  Serious: Yes (Hospitalization)
  Sender: FDA-Public Use
  Company Number: FR-ASTRAZENECA-2010SE09464

PATIENT
  Age: 66 Year
  Sex: Female

DRUGS (10)
  1. CRESTOR [Suspect]
     Indication: HYPERCHOLESTEROLAEMIA
     Route: 048
     Dates: start: 20070917, end: 20100204
  2. ALLOPURINOL [Suspect]
     Route: 048
     Dates: end: 20070101
  3. ALLOPURINOL [Suspect]
     Route: 048
     Dates: start: 20070101, end: 20100104
  4. PROTELOS [Suspect]
     Indication: OSTEOPOROSIS
     Route: 048
     Dates: start: 20070723
  5. INIPOMP [Suspect]
     Indication: GASTRODUODENAL ULCER
     Route: 048
     Dates: start: 20070201
  6. LASIX [Suspect]
     Indication: HYPERTENSION
     Route: 048
  7. PREDNISONE [Concomitant]
  8. DIFFU-K [Concomitant]
  9. VERAPAMIL [Concomitant]
  10. DUPHALAC [Concomitant]

REACTIONS (4)
  - AXONAL NEUROPATHY [None]
  - BLOOD CREATINE PHOSPHOKINASE INCREASED [None]
  - MYALGIA [None]
  - RENAL FAILURE CHRONIC [None]
